FAERS Safety Report 19283664 (Version 2)
Quarter: 2021Q2

REPORT INFORMATION
  Report Type: Spontaneous
  Country: US (occurrence: US)
  Receive Date: 20210520
  Receipt Date: 20210526
  Transmission Date: 20210717
  Serious: No
  Sender: FDA-Public Use
  Company Number: US-BAXTER-2021BAX011625

PATIENT
  Age: 44 Year
  Sex: Female

DRUGS (3)
  1. DEXTROSE. [Suspect]
     Active Substance: DEXTROSE
     Dosage: AS NEEDED
     Route: 033
  2. EXTRANEAL [Suspect]
     Active Substance: CALCIUM CHLORIDE\ICODEXTRIN\MAGNESIUM CHLORIDE\SODIUM CHLORIDE\SODIUM LACTATE
     Indication: PERITONEAL DIALYSIS
     Route: 033
     Dates: start: 2021, end: 202105
  3. DEXTROSE. [Suspect]
     Active Substance: DEXTROSE
     Indication: PERITONEAL DIALYSIS
     Dosage: REGULAR BASIS
     Route: 033

REACTIONS (2)
  - Rash [Recovering/Resolving]
  - Pruritus [Recovering/Resolving]

NARRATIVE: CASE EVENT DATE: 202105
